FAERS Safety Report 7591486-2 (Version None)
Quarter: 2011Q3

REPORT INFORMATION
  Report Type: 
  Country: None (occurrence: None)
  Receive Date: 20110701
  Receipt Date: 20110701
  Transmission Date: 20111222
  Serious: Yes (Life-Threatening, Hospitalization)
  Sender: FDA-Public Use
  Company Number: None

PATIENT
  Age: 88 Year
  Sex: Female
  Weight: 110 kg

DRUGS (5)
  1. DIGOXIN [Concomitant]
  2. DILTIAZEM [Concomitant]
  3. LEVOTHYROXINE SODIUM [Concomitant]
  4. DABIGATRAN/PRADAXA 150MG BOEHTINGER INGELHEIM [Suspect]
     Indication: ATRIAL FIBRILLATION
     Dosage: 150MG BID PO
     Route: 048
     Dates: start: 20110101, end: 20110608
  5. SOTALOL HCL [Concomitant]

REACTIONS (8)
  - HAEMORRHAGE [None]
  - ROAD TRAFFIC ACCIDENT [None]
  - HAEMORRHAGE INTRACRANIAL [None]
  - CERVICAL VERTEBRAL FRACTURE [None]
  - EXTRADURAL HAEMATOMA [None]
  - SUBDURAL HAEMATOMA [None]
  - CEREBROVASCULAR ACCIDENT [None]
  - MYOCARDIAL ISCHAEMIA [None]
